FAERS Safety Report 4696863-5 (Version None)
Quarter: 2005Q2

REPORT INFORMATION
  Report Type: 
  Country: None (occurrence: None)
  Receive Date: 20050127
  Receipt Date: 20050127
  Transmission Date: 20051028
  Serious: Yes (Other)
  Sender: FDA-Public Use
  Company Number: None

PATIENT
  Sex: Male
  Weight: 93.441 kg

DRUGS (2)
  1. GENERIC FORM OF MS CONTIN 30MG + 15MG [Suspect]
     Indication: DIABETIC NEUROPATHY
     Dosage: ORAL 30 MG 3 TIMES A DAY ; 15 MG 4 TIMES A DAY
     Route: 048
     Dates: start: 20040201, end: 20040301
  2. GENERIC FORM OF MS CONTIN 30MG + 15MG [Suspect]
     Indication: INTERVERTEBRAL DISC DEGENERATION
     Dosage: ORAL 30 MG 3 TIMES A DAY ; 15 MG 4 TIMES A DAY
     Route: 048
     Dates: start: 20040201, end: 20040301

REACTIONS (3)
  - DRUG INEFFECTIVE [None]
  - PAIN [None]
  - THERAPEUTIC RESPONSE UNEXPECTED WITH DRUG SUBSTITUTION [None]
